FAERS Safety Report 13491889 (Version 2)
Quarter: 2017Q2

REPORT INFORMATION
  Report Type: Spontaneous
  Country: JP (occurrence: JP)
  Receive Date: 20170427
  Receipt Date: 20170516
  Transmission Date: 20170830
  Serious: Yes (Death, Other)
  Sender: FDA-Public Use
  Company Number: PHJP2016JP020116

PATIENT
  Age: 49 Year
  Sex: Female

DRUGS (2)
  1. VOTRIENT [Suspect]
     Active Substance: PAZOPANIB HYDROCHLORIDE
     Dosage: 200 MG, UNK
     Route: 048
  2. VOTRIENT [Suspect]
     Active Substance: PAZOPANIB HYDROCHLORIDE
     Indication: UTERINE LEIOMYOSARCOMA
     Dosage: 400 MG, UNK
     Route: 048

REACTIONS (11)
  - Metastases to lung [Unknown]
  - Proteinuria [Unknown]
  - Malignant neoplasm progression [Fatal]
  - General physical health deterioration [Unknown]
  - Uterine leiomyosarcoma [Fatal]
  - Diarrhoea [Unknown]
  - Hypertension [Unknown]
  - Platelet count decreased [Unknown]
  - Metastases to liver [Unknown]
  - Hypothyroidism [Unknown]
  - Female genital tract fistula [Unknown]
